FAERS Safety Report 5673221-8 (Version None)
Quarter: 2008Q2

REPORT INFORMATION
  Report Type: 
  Country: None (occurrence: None)
  Receive Date: 20080219
  Receipt Date: 20071212
  Transmission Date: 20081010
  Serious: No
  Sender: FDA-Public Use
  Company Number: TPA2007A02493

PATIENT
  Age: 22 Year
  Sex: Female
  Weight: 113.3993 kg

DRUGS (3)
  1. ROZEREM [Suspect]
     Indication: INSOMNIA
     Dosage: 8 MG, HS PRN, PER ORAL
     Route: 048
     Dates: start: 20071207
  2. SEROQUIN (ALL OTHER THERAPEUTIC PRODUCTS) [Suspect]
     Dates: start: 20071208
  3. LEXAPRO [Concomitant]

REACTIONS (4)
  - AGITATION [None]
  - ANXIETY [None]
  - DRUG INEFFECTIVE [None]
  - INITIAL INSOMNIA [None]
